FAERS Safety Report 8815168 (Version 2)
Quarter: 2012Q4

REPORT INFORMATION
  Report Type: 
  Country: US (occurrence: US)
  Receive Date: 20120928
  Receipt Date: 20121115
  Transmission Date: 20130627
  Serious: No
  Sender: FDA-Public Use
  Company Number: US-JNJFOC-20120904760

PATIENT
  Age: 48 Year
  Sex: Male

DRUGS (4)
  1. INVEGA SUSTENNA [Suspect]
     Indication: SCHIZOPHRENIA
     Route: 030
     Dates: start: 20120911
  2. ATIVAN [Concomitant]
     Route: 048
  3. ZOLOFT [Concomitant]
     Route: 048
  4. TRAZODONE [Concomitant]
     Route: 048

REACTIONS (2)
  - Incorrect dose administered [Recovered/Resolved]
  - Drug administration error [Not Recovered/Not Resolved]
